FAERS Safety Report 7164007-6 (Version None)
Quarter: 2010Q4

REPORT INFORMATION
  Report Type: 
  Country: None (occurrence: None)
  Receive Date: 20101215
  Receipt Date: 20101208
  Transmission Date: 20110411
  Serious: No
  Sender: FDA-Public Use
  Company Number: A0894597A

PATIENT
  Age: 11 Year
  Sex: Male
  Weight: 54.5 kg

DRUGS (1)
  1. ALTABAX [Suspect]
     Route: 061

REACTIONS (6)
  - APPLICATION SITE ERYTHEMA [None]
  - APPLICATION SITE PAIN [None]
  - APPLICATION SITE PRURITUS [None]
  - CHEILITIS [None]
  - DERMATITIS CONTACT [None]
  - LIP SWELLING [None]
